FAERS Safety Report 5958936-6 (Version None)
Quarter: 2008Q4

REPORT INFORMATION
  Report Type: 
  Country: None (occurrence: None)
  Receive Date: 20081104
  Receipt Date: 20081021
  Transmission Date: 20090506
  Serious: No
  Sender: FDA-Public Use
  Company Number: 2250051-2008-00499

PATIENT
  Sex: Female

DRUGS (1)
  1. RHOGAM ULTRA-FILTERED PLUS [Suspect]
     Indication: PROPHYLAXIS
     Dosage: 300 UG 1X IM
     Route: 030
     Dates: start: 20080916

REACTIONS (5)
  - ARTHRALGIA [None]
  - BACK PAIN [None]
  - DRUG EXPOSURE DURING PREGNANCY [None]
  - PYREXIA [None]
  - RASH [None]
